FAERS Safety Report 19351628 (Version 4)
Quarter: 2021Q3

REPORT INFORMATION
  Report Type: Other
  Country: CH (occurrence: CH)
  Receive Date: 20210531
  Receipt Date: 20210804
  Transmission Date: 20211014
  Serious: Yes (Other)
  Sender: FDA-Public Use
  Company Number: CH-ROCHE-2838095

PATIENT
  Age: 57 Year
  Sex: Male
  Weight: 63 kg

DRUGS (1)
  1. HEMLIBRA [Suspect]
     Active Substance: EMICIZUMAB-KXWH
     Indication: FACTOR VIII DEFICIENCY
     Route: 058
     Dates: start: 20210112

REACTIONS (1)
  - Haemorrhage [Recovering/Resolving]

NARRATIVE: CASE EVENT DATE: 20210524
